FAERS Safety Report 8553054-5 (Version None)
Quarter: 2012Q3

REPORT INFORMATION
  Report Type: 
  Country: None (occurrence: None)
  Receive Date: 20120731
  Receipt Date: 20120718
  Transmission Date: 20120928
  Serious: Yes (Other)
  Sender: FDA-Public Use
  Company Number: JP-SANOFI-AVENTIS-2012SA051883

PATIENT

DRUGS (1)
  1. DOCETAXEL [Suspect]
     Route: 042

REACTIONS (2)
  - DIZZINESS [None]
  - LEUKOENCEPHALOPATHY [None]
